FAERS Safety Report 12482599 (Version 3)
Quarter: 2016Q3

REPORT INFORMATION
  Report Type: Spontaneous
  Country: US (occurrence: US)
  Receive Date: 20160620
  Receipt Date: 20160819
  Transmission Date: 20161109
  Serious: Yes (Other)
  Sender: FDA-Public Use
  Company Number: US-PFIZER INC-2016301633

PATIENT
  Age: 59 Year
  Sex: Male
  Weight: 79.38 kg

DRUGS (8)
  1. FENTANYL TRANSDERMAL SYSTEM [Concomitant]
     Active Substance: FENTANYL
     Indication: PAIN
     Dosage: 225 UG, 1X/DAY (75 MCG PATCH 3 PATCHES ONCE DAILY)
     Dates: start: 2006
  2. GLIPIZIDE. [Concomitant]
     Active Substance: GLIPIZIDE
     Indication: DIABETES MELLITUS
     Dosage: 5 MG, 3X/DAY
     Route: 048
  3. LISINOPRIL. [Concomitant]
     Active Substance: LISINOPRIL
     Indication: DIABETES MELLITUS
     Dosage: 5 MG, DAILY
     Route: 048
  4. METFORMIN [Concomitant]
     Active Substance: METFORMIN HYDROCHLORIDE
     Indication: DIABETES MELLITUS
     Dosage: 1000 MG, 2X/DAY
     Route: 048
  5. FENTANYL LOLLIPOP [Concomitant]
     Indication: PAIN
     Dosage: 1200 UG, 3X/DAY
     Route: 048
  6. LYRICA [Suspect]
     Active Substance: PREGABALIN
     Dosage: 150 MG, 2X/DAY
     Route: 048
     Dates: start: 2016
  7. LYRICA [Suspect]
     Active Substance: PREGABALIN
     Indication: DIABETIC NEUROPATHY
     Dosage: 75 MG, 2X/DAY
     Route: 048
     Dates: start: 201508
  8. LYRICA [Suspect]
     Active Substance: PREGABALIN
     Dosage: 150 MG, 2X/DAY
     Route: 048
     Dates: end: 2016

REACTIONS (6)
  - Dyspnoea [Unknown]
  - Fear [Unknown]
  - Abasia [Unknown]
  - Amnesia [Not Recovered/Not Resolved]
  - Insomnia [Unknown]
  - Eating disorder [Unknown]

NARRATIVE: CASE EVENT DATE: 2016
